FAERS Safety Report 11104404 (Version 1)
Quarter: 2015Q2

REPORT INFORMATION
  Report Type: Spontaneous
  Country: GB (occurrence: GB)
  Receive Date: 20150511
  Receipt Date: 20150511
  Transmission Date: 20150821
  Serious: Yes (Disabling)
  Sender: FDA-Public Use
  Company Number: GB-PFIZER INC-2015153041

PATIENT
  Age: 70 Year
  Sex: Female
  Weight: 65 kg

DRUGS (5)
  1. AZARGA [Concomitant]
     Active Substance: BRINZOLAMIDE\TIMOLOL MALEATE
     Dosage: 2 GTT, 2X/DAY ONE/ EYE
     Dates: start: 20140109
  2. LUMIGAN [Concomitant]
     Active Substance: BIMATOPROST
     Dosage: 2 GTT, 1X/DAY 1/ EYE
     Dates: start: 20140109
  3. ATORVASTATIN [Suspect]
     Active Substance: ATORVASTATIN
     Dosage: UNK
     Dates: start: 20130206
  4. ADIPINE [Concomitant]
     Dosage: 1 DF, 1X/DAY
     Dates: start: 20120516
  5. BENDROFLUMETHIAZIDE [Concomitant]
     Active Substance: BENDROFLUMETHIAZIDE
     Dosage: 1 DF, 1X/DAY IN MORNING
     Dates: start: 20120516

REACTIONS (2)
  - Paraesthesia [Recovered/Resolved]
  - Motor dysfunction [Recovered/Resolved]

NARRATIVE: CASE EVENT DATE: 20150309
